FAERS Safety Report 15386821 (Version 1)
Quarter: 2018Q3

REPORT INFORMATION
  Report Type: Spontaneous
  Country: US (occurrence: US)
  Receive Date: 20180914
  Receipt Date: 20180914
  Transmission Date: 20181010
  Serious: No
  Sender: FDA-Public Use
  Company Number: US-PFIZER INC-2018366633

PATIENT
  Sex: Female
  Weight: 65.77 kg

DRUGS (5)
  1. SYNTHROID [Concomitant]
     Active Substance: LEVOTHYROXINE SODIUM
     Dosage: 125 (UNIT UNSPECIFIED), 2 DAYS A WEEK
     Route: 048
  2. LYRICA [Suspect]
     Active Substance: PREGABALIN
     Indication: MIGRAINE
     Dosage: 50 MG, 2X/DAY
     Dates: start: 2017
  3. SYNTHROID [Concomitant]
     Active Substance: LEVOTHYROXINE SODIUM
     Indication: THYROIDECTOMY
     Dosage: 112 (UNIT UNSPECIFIED), 5 DAYS A WEEK
     Route: 048
  4. MOBIC [Concomitant]
     Active Substance: MELOXICAM
     Indication: MIGRAINE
     Dosage: 15 ^MC^, ONCE A DAY
  5. VERAPAMIL [Concomitant]
     Active Substance: VERAPAMIL HYDROCHLORIDE
     Indication: MIGRAINE
     Dosage: 100 MG, ONCE A DAY

REACTIONS (4)
  - Somnolence [Unknown]
  - Intentional product misuse [Unknown]
  - Product use in unapproved indication [Unknown]
  - Feeling abnormal [Unknown]
